FAERS Safety Report 8212756-0 (Version None)
Quarter: 2012Q1

REPORT INFORMATION
  Report Type: 
  Country: None (occurrence: None)
  Receive Date: 20120229
  Receipt Date: 20110421
  Transmission Date: 20120608
  Serious: Yes (Hospitalization)
  Sender: FDA-Public Use
  Company Number: US-JNJFOC-20110409645

PATIENT
  Age: 13 Year
  Sex: Female

DRUGS (1)
  1. IBUPROFEN [Suspect]
     Indication: HEADACHE
     Dosage: STRENGTH AND DOSE UNKNOWN (REPORTED AS A ^COUPLE^ OVER THE COURSE OF TWO DAYS)
     Dates: start: 20040101

REACTIONS (1)
  - TOXIC EPIDERMAL NECROLYSIS [None]
